FAERS Safety Report 18976263 (Version 4)
Quarter: 2021Q3

REPORT INFORMATION
  Report Type: Report from Study
  Country: US (occurrence: US)
  Receive Date: 20210306
  Receipt Date: 20210731
  Transmission Date: 20211014
  Serious: No
  Sender: FDA-Public Use
  Company Number: NVSC2021US046590

PATIENT
  Sex: Male

DRUGS (3)
  1. ENTRESTO [Suspect]
     Active Substance: SACUBITRIL\VALSARTAN
     Indication: PRODUCT USED FOR UNKNOWN INDICATION
     Dosage: 50 MG, BID (24/26 MG)
     Route: 048
     Dates: start: 2019
  2. VITAMIN B5 [Concomitant]
     Active Substance: PANTOTHENIC ACID
     Indication: PRODUCT USED FOR UNKNOWN INDICATION
     Dosage: UNK
     Route: 065
  3. ENTRESTO [Suspect]
     Active Substance: SACUBITRIL\VALSARTAN
     Dosage: 100 MG, BID (49/51 MG)
     Route: 048

REACTIONS (13)
  - Limb discomfort [Unknown]
  - Gait disturbance [Unknown]
  - Hypotension [Unknown]
  - Gout [Unknown]
  - Feeling drunk [Unknown]
  - Dizziness [Unknown]
  - Inappropriate schedule of product administration [Unknown]
  - Movement disorder [Unknown]
  - Muscular weakness [Unknown]
  - Arthralgia [Unknown]
  - Cough [Unknown]
  - Drug intolerance [Unknown]
  - Nasal congestion [Unknown]
